FAERS Safety Report 9428231 (Version 1)
Quarter: 2013Q3

REPORT INFORMATION
  Report Type: Spontaneous
  Country: US (occurrence: US)
  Receive Date: 20130730
  Receipt Date: 20130730
  Transmission Date: 20140515
  Serious: No
  Sender: FDA-Public Use
  Company Number: US-GLAXOSMITHKLINE-A0995640A

PATIENT
  Age: 60 Year
  Sex: Female
  Weight: 77.3 kg

DRUGS (7)
  1. ZANTAC [Suspect]
     Indication: BARRETT^S OESOPHAGUS
     Dosage: 150MG PER DAY
     Route: 048
     Dates: start: 201109
  2. OMEPRAZOLE [Suspect]
     Indication: PRODUCT USED FOR UNKNOWN INDICATION
     Dosage: 150MG UNKNOWN
     Route: 065
  3. RANITIDINE [Suspect]
     Indication: PRODUCT USED FOR UNKNOWN INDICATION
     Route: 065
  4. PRILOSEC [Suspect]
     Indication: PRODUCT USED FOR UNKNOWN INDICATION
     Route: 065
  5. PAXIL [Suspect]
     Indication: PRODUCT USED FOR UNKNOWN INDICATION
     Route: 065
  6. KEPPRA [Concomitant]
  7. CHEWABLE VITAMIN [Concomitant]

REACTIONS (21)
  - Abdominal distension [Not Recovered/Not Resolved]
  - Renal disorder [Unknown]
  - Abnormal sensation in eye [Unknown]
  - Epigastric discomfort [Unknown]
  - Affective disorder [Unknown]
  - Gastrointestinal sounds abnormal [Unknown]
  - Insomnia [Unknown]
  - Malaise [Unknown]
  - Adverse event [Unknown]
  - Burning sensation [Unknown]
  - Drug hypersensitivity [Unknown]
  - Flatulence [Unknown]
  - Renal pain [Unknown]
  - Abdominal discomfort [Unknown]
  - Somnolence [Unknown]
  - Sleep disorder [Unknown]
  - Weight decreased [Unknown]
  - Dyspepsia [Unknown]
  - Abdominal pain upper [Unknown]
  - Drug interaction [Unknown]
  - Drug ineffective [Unknown]
